FAERS Safety Report 22596593 (Version 1)
Quarter: 2023Q2

REPORT INFORMATION
  Report Type: Spontaneous
  Country: US (occurrence: None)
  Receive Date: 20230613
  Receipt Date: 20230613
  Transmission Date: 20230722
  Serious: Yes (Hospitalization)
  Sender: FDA-Public Use
  Company Number: None

PATIENT
  Sex: Female

DRUGS (1)
  1. EPINEPHRINE [Suspect]
     Active Substance: EPINEPHRINE
     Indication: Complement factor abnormal
     Dosage: 0.3 MG PRN INTRAMUSCULAR
     Route: 030
     Dates: start: 20211120

REACTIONS (4)
  - Peripheral swelling [None]
  - Peripheral swelling [None]
  - Weight increased [None]
  - Pulmonary thrombosis [None]
